FAERS Safety Report 4899201-8 (Version None)
Quarter: 2006Q1

REPORT INFORMATION
  Report Type: 
  Country: None (occurrence: None)
  Receive Date: 20060106
  Receipt Date: 20050208
  Transmission Date: 20060701
  Serious: Yes (Other)
  Sender: FDA-Public Use
  Company Number: HQWYE367816FEB05

PATIENT
  Sex: Female
  Weight: 106.69 kg

DRUGS (1)
  1. PRIMATENE MIST [Suspect]
     Indication: BRONCHITIS
     Dosage: 1 INHALATION THREE TIMES DAILY, INHALATION
     Dates: start: 20050101, end: 20050201

REACTIONS (1)
  - ABDOMINAL PAIN UPPER [None]
